FAERS Safety Report 13045635 (Version 1)
Quarter: 2016Q4

REPORT INFORMATION
  Report Type: Report from Study
  Country: US (occurrence: US)
  Receive Date: 20161220
  Receipt Date: 20161220
  Transmission Date: 20170207
  Serious: Yes (Death)
  Sender: FDA-Public Use
  Company Number: PHEH2016US033023

PATIENT

DRUGS (3)
  1. AFINITOR [Suspect]
     Active Substance: EVEROLIMUS
     Indication: BENIGN LUNG NEOPLASM
  2. AFINITOR [Suspect]
     Active Substance: EVEROLIMUS
     Indication: BENIGN RESPIRATORY TRACT NEOPLASM
  3. AFINITOR [Suspect]
     Active Substance: EVEROLIMUS
     Indication: BENIGN EAR NEOPLASM
     Dosage: 5 MG, QD
     Route: 048

REACTIONS (2)
  - Death [Fatal]
  - Product use issue [Unknown]
